FAERS Safety Report 20087502 (Version 1)
Quarter: 2021Q4

REPORT INFORMATION
  Report Type: Spontaneous
  Country: US (occurrence: None)
  Receive Date: 20211118
  Receipt Date: 20211118
  Transmission Date: 20220303
  Serious: Yes (Life-Threatening)
  Sender: FDA-Public Use
  Company Number: None

PATIENT
  Age: 28 Year
  Sex: Female
  Weight: 63.4 kg

DRUGS (9)
  1. FOSAPREPITANT [Suspect]
     Active Substance: FOSAPREPITANT
     Indication: Nausea
     Dosage: OTHER FREQUENCY : ONCE;?
     Route: 042
     Dates: start: 20211117, end: 20211117
  2. Acetaminophen 650 mg (pre-med) [Concomitant]
     Dates: start: 20211117
  3. Decadron 4 mg/ml - 10 mg IV push (pre-med) [Concomitant]
     Dates: start: 20211117
  4. Diphenhydramine 50 mg/ml - 25 mg IV push (pre-med) [Concomitant]
     Dates: start: 20211117
  5. Palonosetron 0.25 mg IV (pre-med) [Concomitant]
     Dates: start: 20211117
  6. Dacarbazine 634 mg [Concomitant]
     Dates: start: 20211117
  7. Bleomycin 16.8 units [Concomitant]
     Dates: start: 20211117
  8. Doxorubicin 42.2 mg [Concomitant]
     Dates: start: 20211117
  9. Vinblastine 10.1 mg [Concomitant]
     Dates: start: 20211117

REACTIONS (6)
  - Flushing [None]
  - Hyperhidrosis [None]
  - Nausea [None]
  - Syncope [None]
  - Heart rate increased [None]
  - Heart rate decreased [None]

NARRATIVE: CASE EVENT DATE: 20211117
